FAERS Safety Report 8048421 (Version 6)
Quarter: 2016Q1

REPORT INFORMATION
  Report Type: Spontaneous
  Country: US (occurrence: US)
  Receive Date: 20110721
  Receipt Date: 20160122
  Transmission Date: 20160526
  Serious: Yes (Hospitalization, Other)
  Sender: FDA-Public Use
  Company Number: US-ASTRAZENECA-2011SE36199

PATIENT
  Age: 52 Year
  Sex: Female
  Weight: 86.2 kg

DRUGS (13)
  1. LOVAZA [Concomitant]
     Active Substance: OMEGA-3-ACID ETHYL ESTERS
     Indication: BLOOD TRIGLYCERIDES ABNORMAL
  2. LORTAB [Concomitant]
     Active Substance: ACETAMINOPHEN\HYDROCODONE BITARTRATE
     Indication: PAIN
  3. NEXIUM [Suspect]
     Active Substance: ESOMEPRAZOLE MAGNESIUM
     Indication: BARRETT^S OESOPHAGUS
     Route: 048
  4. PRILOSEC OTC [Suspect]
     Active Substance: OMEPRAZOLE MAGNESIUM
     Route: 048
  5. LEVOTHYROXINE. [Concomitant]
     Active Substance: LEVOTHYROXINE
     Indication: THYROID DISORDER
  6. METFORMIN [Concomitant]
     Active Substance: METFORMIN HYDROCHLORIDE
     Indication: DIABETES MELLITUS
  7. NEXIUM [Suspect]
     Active Substance: ESOMEPRAZOLE MAGNESIUM
     Indication: BARRETT^S OESOPHAGUS
     Dosage: GENERIC
     Route: 048
  8. NEXIUM [Suspect]
     Active Substance: ESOMEPRAZOLE MAGNESIUM
     Indication: BARRETT^S OESOPHAGUS
     Route: 048
  9. LASIX [Concomitant]
     Active Substance: FUROSEMIDE
     Indication: OEDEMA
  10. POTASSIUM [Concomitant]
     Active Substance: POTASSIUM
  11. SIMVASTATIN. [Concomitant]
     Active Substance: SIMVASTATIN
     Indication: BLOOD CHOLESTEROL ABNORMAL
  12. AVINZA [Concomitant]
     Active Substance: MORPHINE SULFATE
     Indication: PAIN
  13. NEXIUM [Suspect]
     Active Substance: ESOMEPRAZOLE MAGNESIUM
     Indication: BARRETT^S OESOPHAGUS
     Route: 048
     Dates: start: 2008

REACTIONS (18)
  - Gastrooesophageal reflux disease [Unknown]
  - Spinal fracture [Unknown]
  - Road traffic accident [Unknown]
  - Dyspnoea [Unknown]
  - Product use issue [Not Recovered/Not Resolved]
  - Dysphonia [Unknown]
  - Intentional product misuse [Unknown]
  - Barrett^s oesophagus [Unknown]
  - Upper limb fracture [Unknown]
  - Adverse event [Unknown]
  - Mental impairment [Unknown]
  - Dyspepsia [Not Recovered/Not Resolved]
  - Neck pain [Unknown]
  - Amnesia [Unknown]
  - Off label use [Not Recovered/Not Resolved]
  - Drug ineffective [Unknown]
  - Drug dose omission [Unknown]
  - Insomnia [Unknown]

NARRATIVE: CASE EVENT DATE: 2008
